FAERS Safety Report 23901978 (Version 1)
Quarter: 2024Q2

REPORT INFORMATION
  Report Type: Spontaneous
  Country: US (occurrence: US)
  Receive Date: 20240526
  Receipt Date: 20240526
  Transmission Date: 20240716
  Serious: Yes (Life-Threatening, Other)
  Sender: FDA-Public Use
  Company Number: US-ENDO USA, INC.-2024-002188

PATIENT
  Age: 15 Year
  Sex: Male

DRUGS (1)
  1. IBUPROFEN [Suspect]
     Active Substance: IBUPROFEN
     Indication: Product used for unknown indication
     Dosage: APPROXIMATELY 80 G (}1000MG/KG), UNKNOWN
     Route: 048

REACTIONS (7)
  - Circulatory collapse [Recovered/Resolved]
  - Laboratory test abnormal [Recovered/Resolved]
  - Shock [Recovered/Resolved]
  - Blood lactic acid increased [Recovered/Resolved]
  - Depressed level of consciousness [Recovered/Resolved]
  - Metabolic acidosis [Recovered/Resolved]
  - Intentional overdose [Recovered/Resolved]
